FAERS Safety Report 22354672 (Version 2)
Quarter: 2023Q2

REPORT INFORMATION
  Report Type: Other
  Country: US (occurrence: None)
  Receive Date: 20230523
  Receipt Date: 20230627
  Transmission Date: 20230722
  Serious: No
  Sender: FDA-Public Use
  Company Number: US-ROCHE-3351875

PATIENT
  Age: 44 Year
  Sex: Female
  Weight: 52.21 kg

DRUGS (23)
  1. OCREVUS [Suspect]
     Active Substance: OCRELIZUMAB
     Indication: Relapsing-remitting multiple sclerosis
     Dosage: NO
     Route: 042
     Dates: end: 202104
  2. OCREVUS [Suspect]
     Active Substance: OCRELIZUMAB
     Dosage: DATE OF SERVICE: 31/MAY/2023, 14/JUN/2023 (VIAL, 300MG), DATE OF TREATMENT: 31/MAY/2023
     Route: 042
     Dates: start: 20230530
  3. KLONOPIN [Suspect]
     Active Substance: CLONAZEPAM
     Indication: Anxiety
     Route: 048
     Dates: start: 2010
  4. KLONOPIN [Suspect]
     Active Substance: CLONAZEPAM
     Indication: Insomnia
  5. BACLOFEN [Concomitant]
     Active Substance: BACLOFEN
  6. NEURONTIN [Concomitant]
     Active Substance: GABAPENTIN
  7. ATIVAN [Concomitant]
     Active Substance: LORAZEPAM
  8. ZANAFLEX [Concomitant]
     Active Substance: TIZANIDINE HYDROCHLORIDE
  9. WELLBUTRIN XL [Concomitant]
     Active Substance: BUPROPION HYDROCHLORIDE
  10. SPIRONOLACTONE [Concomitant]
     Active Substance: SPIRONOLACTONE
  11. ARMODAFINIL [Concomitant]
     Active Substance: ARMODAFINIL
  12. DEPLIN (UNITED STATES) [Concomitant]
  13. LYSINE [Concomitant]
     Active Substance: LYSINE
  14. VITAMIN A [Concomitant]
     Active Substance: VITAMIN A
  15. CALCIUM [Concomitant]
     Active Substance: CALCIUM
  16. VITAMIN E [Concomitant]
     Active Substance: .ALPHA.-TOCOPHEROL
  17. VITAMIN D3 [Concomitant]
     Active Substance: CHOLECALCIFEROL
  18. ZINC [Concomitant]
     Active Substance: ZINC
  19. VITAMIN C [Concomitant]
     Active Substance: ASCORBIC ACID
  20. MAGNESIUM [Concomitant]
     Active Substance: MAGNESIUM
  21. SENOKOT [Concomitant]
     Active Substance: SENNOSIDES
  22. FLEET ENEMA [Concomitant]
     Active Substance: SODIUM PHOSPHATE, DIBASIC\SODIUM PHOSPHATE, MONOBASIC
  23. BENADRYL [Concomitant]
     Active Substance: DIPHENHYDRAMINE HYDROCHLORIDE

REACTIONS (12)
  - COVID-19 [Recovered/Resolved]
  - Dysphonia [Not Recovered/Not Resolved]
  - Pneumonia [Recovered/Resolved]
  - Rash [Not Recovered/Not Resolved]
  - Amnesia [Not Recovered/Not Resolved]
  - Balance disorder [Not Recovered/Not Resolved]
  - Lethargy [Unknown]
  - Herpes virus infection [Recovering/Resolving]
  - Pain [Unknown]
  - Cough [Unknown]
  - Hypopnoea [Unknown]
  - Crepitations [Unknown]

NARRATIVE: CASE EVENT DATE: 20210101
